FAERS Safety Report 17488100 (Version 18)
Quarter: 2021Q3

REPORT INFORMATION
  Report Type: Spontaneous
  Country: US (occurrence: US)
  Receive Date: 20200303
  Receipt Date: 20210825
  Transmission Date: 20211014
  Serious: Yes (Other)
  Sender: FDA-Public Use
  Company Number: US-PFIZER INC-2020094520

PATIENT
  Age: 63 Year
  Sex: Male

DRUGS (4)
  1. LYRICA [Suspect]
     Active Substance: PREGABALIN
     Indication: NEURALGIA
     Dosage: UNK, THREE TIMES A DAY
  2. LYRICA [Suspect]
     Active Substance: PREGABALIN
     Indication: NERVE INJURY
     Dosage: 100 MG, THREE TIMES A DAY
     Route: 048
  3. LYRICA [Suspect]
     Active Substance: PREGABALIN
     Indication: MUSCLE SPASMS
     Dosage: UNK, TWO TIMES A DAY
  4. LYRICA [Suspect]
     Active Substance: PREGABALIN
     Indication: MAJOR DEPRESSION

REACTIONS (11)
  - Suicidal ideation [Unknown]
  - Intentional product use issue [Unknown]
  - Insomnia [Unknown]
  - Malaise [Unknown]
  - Withdrawal syndrome [Unknown]
  - Intentional product misuse [Unknown]
  - Drug dependence [Unknown]
  - Vomiting [Unknown]
  - Cold sweat [Unknown]
  - Nervousness [Unknown]
  - Dry mouth [Unknown]

NARRATIVE: CASE EVENT DATE: 20210401
